FAERS Safety Report 15430505 (Version 1)
Quarter: 2018Q3

REPORT INFORMATION
  Report Type: Spontaneous
  Country: IT (occurrence: IT)
  Receive Date: 20180926
  Receipt Date: 20180926
  Transmission Date: 20181010
  Serious: Yes (Other)
  Sender: FDA-Public Use
  Company Number: IT-JNJFOC-20180922210

PATIENT
  Age: 50 Year
  Sex: Female

DRUGS (4)
  1. CARBOCISTEINE LYSINE [Suspect]
     Active Substance: CARBOCYSTEINE LYSINE
     Indication: BRONCHITIS
     Route: 048
     Dates: start: 20180908
  2. CLENIL MODULITE [Concomitant]
     Active Substance: BECLOMETHASONE DIPROPIONATE
     Route: 055
  3. LEVOFLOXACIN. [Suspect]
     Active Substance: LEVOFLOXACIN
     Indication: BRONCHITIS
     Route: 048
     Dates: start: 20180908
  4. BREVA [Concomitant]
     Active Substance: ALBUTEROL\IPRATROPIUM
     Route: 055

REACTIONS (2)
  - Asthenia [Recovering/Resolving]
  - Nausea [Recovering/Resolving]

NARRATIVE: CASE EVENT DATE: 20180910
